FAERS Safety Report 9732027 (Version 2)
Quarter: 2013Q4

REPORT INFORMATION
  Report Type: Spontaneous
  Country: FR (occurrence: FR)
  Receive Date: 20131205
  Receipt Date: 20131230
  Transmission Date: 20140711
  Serious: Yes (Death, Hospitalization)
  Sender: FDA-Public Use
  Company Number: FR-B.I. PHARMACEUTICALS,INC./RIDGEFIELD-2013-BI-40368FF

PATIENT
  Age: 81 Year
  Sex: Male
  Weight: 80 kg

DRUGS (7)
  1. PRADAXA [Suspect]
     Indication: ATRIAL FIBRILLATION
     Dosage: 220 MG
     Route: 048
  2. CARDENSIEL 1.25 MG [Concomitant]
  3. LASILIX 20 MG [Concomitant]
  4. ZYLORIC [Concomitant]
  5. JOSIR ER 4 MG [Concomitant]
  6. DOLIPRANE 1000 [Concomitant]
  7. KARDEGIC 75 [Concomitant]

REACTIONS (2)
  - Cerebral haemorrhage [Fatal]
  - Aphasia [Unknown]
